FAERS Safety Report 4829896-6 (Version None)
Quarter: 2005Q4

REPORT INFORMATION
  Report Type: 
  Country: None (occurrence: None)
  Receive Date: 20051115
  Receipt Date: 20051104
  Transmission Date: 20060501
  Serious: Yes (Hospitalization, Other)
  Sender: FDA-Public Use
  Company Number: 2005151472

PATIENT
  Age: 55 Year
  Sex: Male
  Weight: 185.9748 kg

DRUGS (5)
  1. NORVASC [Suspect]
     Indication: HYPERTENSION
     Dosage: 5 MG (5 MG, 1 IN 1 D); UNKNOWN
  2. ANAESTHETICS, LOCAL (ANAESTHETICS, LOCAL) [Suspect]
     Indication: KNEE ARTHROPLASTY
     Dates: start: 20050719, end: 20050719
  3. ANALGESICS (ANALGESICS) [Suspect]
     Indication: KNEE ARTHROPLASTY
     Dates: start: 20050719, end: 20050101
  4. TAMSULOSIN [Concomitant]
  5. LISINOPRIL [Concomitant]

REACTIONS (4)
  - ARTHROPATHY [None]
  - ECONOMIC PROBLEM [None]
  - GASTROINTESTINAL OBSTRUCTION [None]
  - POSTOPERATIVE ILEUS [None]
